FAERS Safety Report 9275887 (Version 5)
Quarter: 2015Q1

REPORT INFORMATION
  Report Type: Report from Study
  Country: FR (occurrence: FR)
  Receive Date: 20130507
  Receipt Date: 20150210
  Transmission Date: 20150721
  Serious: Yes (Death, Hospitalization)
  Sender: FDA-Public Use
  Company Number: FR-PFIZER INC-2013138297

PATIENT
  Age: 73 Year
  Sex: Male
  Weight: 87 kg

DRUGS (9)
  1. ZYLORIC [Concomitant]
     Active Substance: ALLOPURINOL
     Dosage: 300 MG, UNK
     Route: 048
     Dates: start: 19961231
  2. COZAAR [Concomitant]
     Active Substance: LOSARTAN POTASSIUM
     Dosage: 75 MG, UNK
     Route: 048
     Dates: start: 2000
  3. ZOCOR [Concomitant]
     Active Substance: SIMVASTATIN
     Dosage: 20 MG, UNK
     Route: 048
     Dates: start: 1997
  4. LASILIX [Concomitant]
     Active Substance: FUROSEMIDE
     Dosage: 40 MG, UNK
     Route: 048
     Dates: start: 20060711
  5. SIROLIMUS. [Suspect]
     Active Substance: SIROLIMUS
     Indication: PROPHYLAXIS AGAINST TRANSPLANT REJECTION
     Dosage: 1 MG, ALTERNATE DAY
     Route: 048
     Dates: start: 20100517, end: 20110610
  6. MIRCERA [Concomitant]
     Active Substance: PEGZEREPOETIN ALFA
     Dosage: 200 UG MONTHLY
     Route: 058
     Dates: start: 20110510
  7. CYCLOSPORINE. [Suspect]
     Active Substance: CYCLOSPORINE
     Indication: PROPHYLAXIS AGAINST TRANSPLANT REJECTION
     Dosage: 20 MG, 1X/DAY
     Route: 048
     Dates: start: 20060411, end: 20100524
  8. OROCAL D3 [Concomitant]
     Active Substance: CALCIUM CARBONATE\CHOLECALCIFEROL
     Dosage: 1 DF, UNK
     Route: 048
     Dates: start: 19961025
  9. SODIUM BICARBONATE. [Concomitant]
     Active Substance: SODIUM BICARBONATE
     Dosage: 3 G DAILY
     Route: 048
     Dates: start: 20110510

REACTIONS (4)
  - Jaundice cholestatic [Unknown]
  - Pancreatic carcinoma [Unknown]
  - Metastases to lung [Unknown]
  - Sepsis [Fatal]

NARRATIVE: CASE EVENT DATE: 20110610
